FAERS Safety Report 8640023 (Version 2)
Quarter: 2013Q2

REPORT INFORMATION
  Report Type: Report from Study
  Country: US (occurrence: US)
  Receive Date: 20120628
  Receipt Date: 20130627
  Transmission Date: 20140414
  Serious: Yes (Life-Threatening, Other)
  Sender: FDA-Public Use
  Company Number: US-MYLANLABS-2011S1019159

PATIENT
  Age: 72 Year
  Sex: Female
  Weight: 74.84 kg

DRUGS (22)
  1. CLOZAPINE TABLETS [Suspect]
     Indication: TREMOR
     Route: 048
     Dates: end: 20111219
  2. CLOZAPINE TABLETS [Suspect]
     Indication: PARKINSON^S DISEASE
     Route: 048
     Dates: end: 20111219
  3. CLOZAPINE TABLETS [Suspect]
     Indication: TREMOR
     Route: 048
     Dates: start: 20111223
  4. CLOZAPINE TABLETS [Suspect]
     Indication: PARKINSON^S DISEASE
     Route: 048
     Dates: start: 20111223
  5. CLOZAPINE TABLETS [Suspect]
     Indication: TREMOR
     Route: 048
  6. CLOZAPINE TABLETS [Suspect]
     Indication: PARKINSON^S DISEASE
     Route: 048
  7. STALEVO [Concomitant]
     Dates: start: 20111107
  8. GABAPENTIN [Concomitant]
  9. POTASSIUM [Concomitant]
  10. REQUIP [Concomitant]
  11. CYMBALTA [Concomitant]
  12. SINEMET [Concomitant]
     Dosage: 5 TIMES DAILY
  13. SPIRONOLACTONE [Concomitant]
  14. TRICOR [Concomitant]
  15. WELLBUTRIN SR [Concomitant]
  16. MULTIVITAMIN [Concomitant]
  17. SENNA [Concomitant]
  18. CLARITIN /00413701/ [Concomitant]
  19. MILK OF MAGNESIA [Concomitant]
  20. ENEMA FLEET [Concomitant]
  21. TYLENOL [Concomitant]
  22. TYLENOL [Concomitant]

REACTIONS (3)
  - Agranulocytosis [Recovered/Resolved]
  - Granulocytopenia [Not Recovered/Not Resolved]
  - Leukopenia [Recovered/Resolved]
